FAERS Safety Report 8434012-8 (Version None)
Quarter: 2012Q2

REPORT INFORMATION
  Report Type: 
  Country: None (occurrence: None)
  Receive Date: 20120613
  Receipt Date: 20120604
  Transmission Date: 20120825
  Serious: Yes (Hospitalization)
  Sender: FDA-Public Use
  Company Number: US-UCBSA-058958

PATIENT

DRUGS (1)
  1. ROTIGOTINE [Suspect]

REACTIONS (1)
  - FIBULA FRACTURE [None]
